FAERS Safety Report 4424130-3 (Version None)
Quarter: 2004Q3

REPORT INFORMATION
  Report Type: 
  Country: None (occurrence: None)
  Receive Date: 20040809
  Receipt Date: 20040727
  Transmission Date: 20050211
  Serious: Yes (Hospitalization, Other)
  Sender: FDA-Public Use
  Company Number: 027-0981-M0100150

PATIENT
  Age: 62 Year
  Sex: Male
  Weight: 91 kg

DRUGS (8)
  1. ATORVASTATIN (ATORVASTATIN) [Suspect]
     Indication: CORONARY ARTERY DISEASE
     Dosage: SEE IMAGE, ORAL
     Route: 048
     Dates: start: 19990520, end: 19990714
  2. ATORVASTATIN (ATORVASTATIN) [Suspect]
     Indication: CORONARY ARTERY DISEASE
     Dosage: SEE IMAGE, ORAL
     Route: 048
     Dates: start: 19990715
  3. WARFARIN (WARFARIN) [Concomitant]
  4. PIRETANIDE (PIRETANIDE) [Concomitant]
  5. METFORMIN HCL [Concomitant]
  6. GLYBURIDE [Concomitant]
  7. OCADRIK (VERAPAMIL, TRANDOLAPRIL) [Concomitant]
  8. CARVEDILOL [Concomitant]

REACTIONS (4)
  - ABDOMINAL HERNIA [None]
  - CHOLELITHIASIS [None]
  - HAEMATURIA [None]
  - REFUSAL OF TREATMENT BY PATIENT [None]
